FAERS Safety Report 6369333-6 (Version None)
Quarter: 2009Q3

REPORT INFORMATION
  Report Type: 
  Country: None (occurrence: None)
  Receive Date: 20090916
  Receipt Date: 20090910
  Transmission Date: 20100115
  Serious: Yes (Hospitalization)
  Sender: FDA-Public Use
  Company Number: 2009JP005559

PATIENT
  Age: 61 Year
  Sex: Female

DRUGS (2)
  1. PROGRAF [Suspect]
     Indication: RHEUMATOID ARTHRITIS
     Dates: end: 20090101
  2. ETANERCEPT (ETANERCEPT) [Concomitant]

REACTIONS (2)
  - LUNG INFECTION [None]
  - SEPTIC SHOCK [None]
